FAERS Safety Report 13061307 (Version 1)
Quarter: 2016Q4

REPORT INFORMATION
  Report Type: Spontaneous
  Country: JP (occurrence: JP)
  Receive Date: 20161226
  Receipt Date: 20161226
  Transmission Date: 20170207
  Serious: Yes (Life-Threatening, Hospitalization)
  Sender: FDA-Public Use
  Company Number: JP-ROCHE-1869885

PATIENT
  Age: 39 Year
  Sex: Female

DRUGS (10)
  1. ALECTINIB [Suspect]
     Active Substance: ALECTINIB
     Route: 048
  2. RABEPRAZOLE SODIUM. [Concomitant]
     Active Substance: RABEPRAZOLE SODIUM
     Route: 065
  3. ALECTINIB [Suspect]
     Active Substance: ALECTINIB
     Dosage: ON DAYS 5-7
     Route: 048
  4. ALECTINIB [Suspect]
     Active Substance: ALECTINIB
     Dosage: ON DAYS 10 AND 11
     Route: 048
  5. DOCETAXEL. [Concomitant]
     Active Substance: DOCETAXEL
     Indication: METASTASES TO CENTRAL NERVOUS SYSTEM
     Dosage: 4 COURSES
     Route: 065
  6. ALECTINIB [Suspect]
     Active Substance: ALECTINIB
     Dosage: ON DAYS 10 AND 11
     Route: 048
  7. ALECTINIB [Suspect]
     Active Substance: ALECTINIB
     Dosage: ON DAYS 8 AND 9
     Route: 048
  8. ALECTINIB [Suspect]
     Active Substance: ALECTINIB
     Indication: NON-SMALL CELL LUNG CANCER
     Dosage: ON DAYS 1 AND 2
     Route: 048
  9. AMBROXOL HYDROCHLORIDE [Concomitant]
     Active Substance: AMBROXOL HYDROCHLORIDE
     Route: 065
  10. ALECTINIB [Suspect]
     Active Substance: ALECTINIB
     Dosage: DAYS 3 AND 4
     Route: 048

REACTIONS (1)
  - Erythema multiforme [Recovered/Resolved]
